FAERS Safety Report 8366823-1 (Version None)
Quarter: 2012Q2

REPORT INFORMATION
  Report Type: 
  Country: None (occurrence: None)
  Receive Date: 20120515
  Receipt Date: 20120515
  Transmission Date: 20120825
  Serious: Yes (Death)
  Sender: FDA-Public Use
  Company Number: None

PATIENT
  Age: 87 Year
  Sex: Female

DRUGS (2)
  1. AVASTIN [Suspect]
     Dosage: 1 6 WEEKS INTRAOCULAR
     Route: 031
     Dates: start: 20110601, end: 20120301
  2. LUCENTIS [Suspect]
     Indication: AGE-RELATED MACULAR DEGENERATION
     Dosage: 1 4 WEEKS INTRAOCULAR
     Route: 031
     Dates: start: 20100909, end: 20110323

REACTIONS (1)
  - DEATH [None]
